FAERS Safety Report 18677334 (Version 1)
Quarter: 2020Q4

REPORT INFORMATION
  Report Type: Spontaneous
  Country: FR (occurrence: FR)
  Receive Date: 20201229
  Receipt Date: 20201229
  Transmission Date: 20210114
  Serious: Yes (Hospitalization)
  Sender: FDA-Public Use
  Company Number: FR-MYLANLABS-2020M1104428

PATIENT
  Age: 21 Month
  Sex: Male
  Weight: 11.4 kg

DRUGS (1)
  1. RISPERIDONE MYLAN 1 MG/ML, SOLUTION BUVABLE [Suspect]
     Active Substance: RISPERIDONE
     Indication: PRODUCT USED FOR UNKNOWN INDICATION
     Dosage: UNK
     Route: 048
     Dates: start: 20200303, end: 20200303

REACTIONS (8)
  - Tremor [Recovered/Resolved]
  - Hypotonia [Recovered/Resolved]
  - Somnolence [Recovered/Resolved]
  - Epilepsy [Recovered/Resolved]
  - Gait disturbance [Recovered/Resolved]
  - Myoclonus [Recovered/Resolved]
  - Accidental exposure to product [Unknown]
  - Miosis [Recovered/Resolved]

NARRATIVE: CASE EVENT DATE: 20200303
